FAERS Safety Report 20344212 (Version 4)
Quarter: 2022Q1

REPORT INFORMATION
  Report Type: Spontaneous
  Country: CA (occurrence: CA)
  Receive Date: 20220118
  Receipt Date: 20220314
  Transmission Date: 20220423
  Serious: Yes (Other)
  Sender: FDA-Public Use
  Company Number: CA-CELLTRION INC.-2021CA015453

PATIENT

DRUGS (10)
  1. INFLIXIMAB [Suspect]
     Active Substance: INFLIXIMAB
     Indication: Rheumatoid arthritis
     Dosage: 120 MILLIGRAM, Q2WEEKS
     Route: 058
     Dates: start: 20211107
  2. INFLIXIMAB [Suspect]
     Active Substance: INFLIXIMAB
     Dosage: UNK
     Route: 058
     Dates: start: 20211205
  3. INFLIXIMAB [Suspect]
     Active Substance: INFLIXIMAB
     Dosage: UNK
     Route: 058
     Dates: start: 20220110
  4. GLYCOPYRROLATE [Concomitant]
     Active Substance: GLYCOPYRROLATE
     Dosage: UNK
  5. DEXILANT [Concomitant]
     Active Substance: DEXLANSOPRAZOLE
  6. IBUPROFEN [Concomitant]
     Active Substance: IBUPROFEN
     Dosage: PRN
  7. TYLENOL [Concomitant]
     Active Substance: ACETAMINOPHEN
     Dosage: UNK, PRN
  8. METHOTREXATE [Concomitant]
     Active Substance: METHOTREXATE
     Dosage: UNK
     Dates: start: 202103
  9. PLAQUENIL [Concomitant]
     Active Substance: HYDROXYCHLOROQUINE SULFATE
     Dosage: UNK
     Dates: start: 202104
  10. FOLIC ACID [Concomitant]
     Active Substance: FOLIC ACID

REACTIONS (22)
  - Rheumatoid arthritis [Unknown]
  - Rhinorrhoea [Recovering/Resolving]
  - Macrocytosis [Unknown]
  - Injection site mass [Recovered/Resolved]
  - Haemorrhoids [Recovered/Resolved]
  - Pruritus genital [Recovered/Resolved]
  - Haemorrhoidal haemorrhage [Unknown]
  - Musculoskeletal stiffness [Unknown]
  - Genital lesion [Unknown]
  - Injection site haemorrhage [Unknown]
  - Cough [Recovered/Resolved]
  - Chest discomfort [Unknown]
  - Constipation [Recovered/Resolved]
  - Fatigue [Unknown]
  - Urinary tract infection [Recovered/Resolved]
  - Injection site pain [Recovered/Resolved]
  - Exposure via skin contact [Unknown]
  - Accidental exposure to product [Unknown]
  - Accidental underdose [Unknown]
  - Wrong technique in device usage process [Unknown]
  - Off label use [Unknown]
  - Product administered at inappropriate site [Unknown]

NARRATIVE: CASE EVENT DATE: 20211107
